FAERS Safety Report 5893632-5 (Version None)
Quarter: 2008Q3

REPORT INFORMATION
  Report Type: 
  Country: None (occurrence: None)
  Receive Date: 20080923
  Receipt Date: 20071023
  Transmission Date: 20090109
  Serious: No
  Sender: FDA-Public Use
  Company Number: US-ASTRAZENECA-2007UW22435

PATIENT
  Age: 16 Year
  Sex: Female
  Weight: 101.6 kg

DRUGS (6)
  1. SEROQUEL [Suspect]
     Indication: AFFECTIVE DISORDER
     Route: 048
  2. SEROQUEL [Suspect]
     Indication: PSYCHOTIC DISORDER
     Route: 048
  3. SEROQUEL [Suspect]
     Route: 048
     Dates: start: 20070921
  4. SEROQUEL [Suspect]
     Route: 048
     Dates: start: 20070921
  5. SEROQUEL [Suspect]
     Dosage: 50 MG QAM, 150 MG QHS
     Route: 048
     Dates: start: 20070924
  6. SEROQUEL [Suspect]
     Dosage: 50 MG QAM, 150 MG QHS
     Route: 048
     Dates: start: 20070924

REACTIONS (1)
  - LIVER FUNCTION TEST ABNORMAL [None]
